FAERS Safety Report 7713349-1 (Version None)
Quarter: 2011Q3

REPORT INFORMATION
  Report Type: 
  Country: None (occurrence: None)
  Receive Date: 20110826
  Receipt Date: 20110816
  Transmission Date: 20111222
  Serious: No
  Sender: FDA-Public Use
  Company Number: US-BAYER-2011-073470

PATIENT
  Sex: Female

DRUGS (1)
  1. MIRENA [Suspect]
     Dosage: 20 ?G/D, UNK
     Route: 015
     Dates: start: 20110101

REACTIONS (6)
  - MOOD SWINGS [None]
  - BACK PAIN [None]
  - WEIGHT INCREASED [None]
  - ABDOMINAL DISTENSION [None]
  - NAUSEA [None]
  - MIGRAINE [None]
